FAERS Safety Report 7941190-3 (Version None)
Quarter: 2011Q4

REPORT INFORMATION
  Report Type: 
  Country: None (occurrence: None)
  Receive Date: 20111122
  Receipt Date: 20111110
  Transmission Date: 20120403
  Serious: Yes (Other)
  Sender: FDA-Public Use
  Company Number: PI-06211

PATIENT
  Sex: Female

DRUGS (7)
  1. SYNTHROID [Concomitant]
  2. CHLORAPREP [Suspect]
     Indication: PREOPERATIVE CARE
     Dosage: 3 X 26ML, ONCE,
     Dates: start: 20111110
  3. ESTRADIOL [Concomitant]
  4. ALLEGRA [Concomitant]
  5. ASPIRIN [Concomitant]
  6. RANITIDINE (ZANTAC) [Concomitant]
  7. FLECAINIDE (TAMBOCOR) [Concomitant]

REACTIONS (4)
  - COUGH [None]
  - RESPIRATORY DISORDER [None]
  - PRODUCT ODOUR ABNORMAL [None]
  - EXPOSURE TO TOXIC AGENT [None]
